FAERS Safety Report 9269581 (Version 1)
Quarter: 2013Q2

REPORT INFORMATION
  Report Type: Spontaneous
  Country: FR (occurrence: FR)
  Receive Date: 20130503
  Receipt Date: 20130503
  Transmission Date: 20140414
  Serious: Yes (Life-Threatening, Other)
  Sender: FDA-Public Use
  Company Number: FR-PFIZER INC-2013133992

PATIENT
  Age: 13 Year
  Sex: Female

DRUGS (7)
  1. ARACYTINE [Suspect]
     Indication: B-CELL TYPE ACUTE LEUKAEMIA
     Dosage: 40 MG CYCLIC, FIRST COURSE
     Route: 037
     Dates: start: 20121001, end: 20121001
  2. VINCRISTINE TEVA [Suspect]
     Indication: B-CELL TYPE ACUTE LEUKAEMIA
     Dosage: 1.5 MG/M2 CYCLIC, FIRST COURSE
     Route: 041
     Dates: start: 20120927
  3. CYTARABINE EBEWE [Suspect]
     Indication: B-CELL TYPE ACUTE LEUKAEMIA
     Dosage: 2000 MG/M2, 2X/DAY, FIRST COURSE
     Route: 041
     Dates: start: 20120927, end: 20120928
  4. ETOPOSIDE MYLAN [Suspect]
     Indication: B-CELL TYPE ACUTE LEUKAEMIA
     Dosage: 150 MG/M2, 1X/DAY, FIRST COURSE
     Route: 041
     Dates: start: 20120929, end: 20121001
  5. DEXAMETHASONE [Suspect]
     Indication: B-CELL TYPE ACUTE LEUKAEMIA
     Dosage: 20 MG/M2, 1X/DAY, FIRST COURSE
     Route: 041
     Dates: start: 20120927, end: 20121001
  6. DEXAMETHASONE [Suspect]
     Dosage: 15 MG, UNK
     Route: 037
     Dates: start: 20121001
  7. METHOTREXATE MYLAN [Suspect]
     Indication: B-CELL TYPE ACUTE LEUKAEMIA
     Dosage: 15 MG, FIRST COURSE
     Route: 037
     Dates: start: 20121001, end: 20121001

REACTIONS (3)
  - Septic shock [Recovered/Resolved]
  - Klebsiella infection [Unknown]
  - Febrile bone marrow aplasia [Unknown]
